FAERS Safety Report 11636080 (Version 1)
Quarter: 2015Q4

REPORT INFORMATION
  Report Type: Report from Study
  Country: US (occurrence: US)
  Receive Date: 20151016
  Receipt Date: 20151016
  Transmission Date: 20160304
  Serious: No
  Sender: FDA-Public Use
  Company Number: US-AMGEN-USASL2015106400

PATIENT
  Age: 52 Year
  Sex: Male

DRUGS (2)
  1. ENBREL [Suspect]
     Active Substance: ETANERCEPT
     Indication: PSORIASIS
     Dosage: UNK UNK, 2 TIMES/WK
     Route: 065
     Dates: start: 2015
  2. ENBREL [Suspect]
     Active Substance: ETANERCEPT
     Dosage: UNK, QWK
     Route: 065
     Dates: start: 2015

REACTIONS (7)
  - Alopecia [Unknown]
  - Gait disturbance [Unknown]
  - Micturition disorder [Unknown]
  - Psoriasis [Unknown]
  - Skin discolouration [Unknown]
  - Pain [Unknown]
  - Genital infection male [Unknown]

NARRATIVE: CASE EVENT DATE: 2015
